FAERS Safety Report 10472452 (Version 1)
Quarter: 2014Q3

REPORT INFORMATION
  Report Type: Spontaneous
  Country: US (occurrence: None)
  Receive Date: 20140923
  Receipt Date: 20140923
  Transmission Date: 20150326
  Serious: Yes (Hospitalization)
  Sender: FDA-Public Use
  Company Number: None

PATIENT
  Age: 24 Year
  Sex: Male
  Weight: 104.5 kg

DRUGS (1)
  1. CLINDAMYCIN [Suspect]
     Active Substance: CLINDAMYCIN\CLINDAMYCIN PHOSPHATE
     Indication: SKIN INFECTION
     Route: 048
     Dates: start: 20140826, end: 20140830

REACTIONS (4)
  - Blood urea increased [None]
  - Blood creatine phosphokinase increased [None]
  - Hepatic enzyme increased [None]
  - Blood creatinine increased [None]

NARRATIVE: CASE EVENT DATE: 20140830
